FAERS Safety Report 8342295 (Version 6)
Quarter: 2013Q1

REPORT INFORMATION
  Report Type: Spontaneous
  Country: US (occurrence: US)
  Receive Date: 20120118
  Receipt Date: 20130131
  Transmission Date: 20140127
  Serious: Yes (Other)
  Sender: FDA-Public Use
  Company Number: US-PFIZER INC-2012003983

PATIENT
  Age: 59 Year
  Sex: Male

DRUGS (1)
  1. PRISTIQ [Suspect]
     Indication: DEPRESSION
     Dosage: 100 MG,DAILY
     Dates: start: 2011

REACTIONS (5)
  - Tooth disorder [Unknown]
  - Arthritis [Unknown]
  - Spinal osteoarthritis [Unknown]
  - Joint injury [Unknown]
  - Fall [Unknown]
